FAERS Safety Report 4847338-1 (Version None)
Quarter: 2005Q4

REPORT INFORMATION
  Report Type: 
  Country: None (occurrence: None)
  Receive Date: 20051202
  Receipt Date: 20051124
  Transmission Date: 20060501
  Serious: Yes (Hospitalization, Other)
  Sender: FDA-Public Use
  Company Number: L05-UKI-05132-01

PATIENT
  Age: 54 Year
  Sex: Female

DRUGS (2)
  1. CITALOPRAM HYDROBROMIDE [Suspect]
     Indication: DEPRESSION
     Dates: end: 20030601
  2. PREMPAK-C [Concomitant]

REACTIONS (9)
  - ALCOHOL POISONING [None]
  - ANGLE CLOSURE GLAUCOMA [None]
  - CORNEAL OEDEMA [None]
  - OVERDOSE [None]
  - PUPIL FIXED [None]
  - RETINAL HAEMORRHAGE [None]
  - SUICIDAL IDEATION [None]
  - TREATMENT NONCOMPLIANCE [None]
  - VITREOUS HAEMORRHAGE [None]
